FAERS Safety Report 11866013 (Version 1)
Quarter: 2015Q4

REPORT INFORMATION
  Report Type: Spontaneous
  Country: ZA (occurrence: ZA)
  Receive Date: 20151223
  Receipt Date: 20151223
  Transmission Date: 20160305
  Serious: Yes (Other)
  Sender: FDA-Public Use
  Company Number: PHHY2015ZA163839

PATIENT
  Age: 45 Year
  Sex: Male

DRUGS (2)
  1. RIMACTANE [Suspect]
     Active Substance: RIFAMPIN
     Indication: SKIN DISORDER
     Dosage: 600 MG, BID
     Route: 048
  2. COLCHICINE. [Interacting]
     Active Substance: COLCHICINE
     Indication: PRODUCT USED FOR UNKNOWN INDICATION
     Route: 065

REACTIONS (2)
  - Drug interaction [Unknown]
  - Gout [Unknown]
